FAERS Safety Report 9435694 (Version 4)
Quarter: 2013Q4

REPORT INFORMATION
  Report Type: Spontaneous
  Country: JP (occurrence: JP)
  Receive Date: 20130801
  Receipt Date: 20131114
  Transmission Date: 20140711
  Serious: Yes (Death, Life-Threatening, Hospitalization)
  Sender: FDA-Public Use
  Company Number: JP-B.I. PHARMACEUTICALS,INC./RIDGEFIELD-2013-BI-22706NB

PATIENT
  Age: 81 Year
  Sex: Female
  Weight: 41.9 kg

DRUGS (4)
  1. MIRAPEX LA [Suspect]
     Indication: PARKINSON^S DISEASE
     Dosage: 0.375 MG
     Route: 048
     Dates: start: 20130612
  2. MIRAPEX LA [Suspect]
     Dosage: 0.75 MG
     Route: 048
     Dates: start: 20130624, end: 20130710
  3. OTSUJITO [Suspect]
     Route: 048
  4. AM (GLYCYRRHIZA POWDER COMBINED DRUG) [Concomitant]
     Route: 048

REACTIONS (1)
  - Interstitial lung disease [Fatal]
